FAERS Safety Report 5152260-X (Version None)
Quarter: 2006Q4

REPORT INFORMATION
  Report Type: 
  Country: None (occurrence: None)
  Receive Date: 20061113
  Receipt Date: 20061113
  Transmission Date: 20070319
  Serious: No
  Sender: FDA-Public Use
  Company Number: None

PATIENT
  Age: 37 Year
  Sex: Male
  Weight: 60.6459 kg

DRUGS (6)
  1. TRUVADA [Suspect]
     Indication: ACQUIRED IMMUNODEFICIENCY SYNDROME
     Dosage: 200/300MG DAILY PO
     Route: 048
     Dates: start: 20040901, end: 20060530
  2. KALETRA [Concomitant]
  3. VIRAMUNE [Concomitant]
  4. BACTRIM [Concomitant]
  5. ALBUTEROL [Concomitant]
  6. ACYCLOVIR [Concomitant]

REACTIONS (2)
  - RENAL IMPAIRMENT [None]
  - RENAL TUBULAR ACIDOSIS [None]
